FAERS Safety Report 7408870-X (Version None)
Quarter: 2011Q1

REPORT INFORMATION
  Report Type: 
  Country: None (occurrence: None)
  Receive Date: 20110301
  Receipt Date: 20101229
  Transmission Date: 20110831
  Serious: No
  Sender: FDA-Public Use
  Company Number: ALA_01441_2010

PATIENT
  Age: 57 Year
  Sex: Female
  Weight: 90.7194 kg

DRUGS (6)
  1. PHENOBARBITAL SRT [Concomitant]
  2. ATENOLOL [Concomitant]
  3. PROTONIX [Concomitant]
  4. DIAZEPAM [Concomitant]
  5. REGLAN [Suspect]
     Indication: ABDOMINAL PAIN UPPER
     Dosage: (10 MG ORAL)
     Route: 048
     Dates: start: 20101101, end: 20100101
  6. DILANTIN [Concomitant]

REACTIONS (2)
  - HEADACHE [None]
  - HYPOAESTHESIA FACIAL [None]
